FAERS Safety Report 23960718 (Version 3)
Quarter: 2024Q4

REPORT INFORMATION
  Report Type: Spontaneous
  Country: PK (occurrence: PK)
  Receive Date: 20240611
  Receipt Date: 20241007
  Transmission Date: 20250114
  Serious: Yes (Other)
  Sender: PFIZER
  Company Number: PK-PFIZER INC-PV202300196657

PATIENT
  Age: 33 Year
  Sex: Female
  Weight: 43 kg

DRUGS (1)
  1. IXIFI [Suspect]
     Active Substance: INFLIXIMAB-QBTX
     Indication: Colitis ulcerative
     Dosage: 200 MG 0, 2, 6 THEN 8-WEEKLY
     Route: 042
     Dates: start: 20231207

REACTIONS (1)
  - Weight decreased [Unknown]
